FAERS Safety Report 8556434-7 (Version None)
Quarter: 2012Q3

REPORT INFORMATION
  Report Type: 
  Country: None (occurrence: None)
  Receive Date: 20120801
  Receipt Date: 20120727
  Transmission Date: 20120928
  Serious: Yes (Other)
  Sender: FDA-Public Use
  Company Number: PHHY2012CA049518

PATIENT
  Sex: Male

DRUGS (2)
  1. CLOZARIL [Suspect]
     Dates: start: 20120529, end: 20120709
  2. CLOZAPINE [Suspect]

REACTIONS (3)
  - SEDATION [None]
  - CONFUSIONAL STATE [None]
  - LYMPHOCYTE MORPHOLOGY ABNORMAL [None]
